FAERS Safety Report 10043354 (Version 1)
Quarter: 2014Q1

REPORT INFORMATION
  Report Type: Spontaneous
  Country: AU (occurrence: None)
  Receive Date: 20140326
  Receipt Date: 20140326
  Transmission Date: 20141002
  Serious: Yes (Other)
  Sender: FDA-Public Use
  Company Number: AUR-APL-2014-03434

PATIENT
  Age: 62 Year
  Sex: Female

DRUGS (2)
  1. SIMVASTATIN (SIMVASTATIN) [Suspect]
     Indication: HYPERLIPIDAEMIA
     Dosage: 50 MG IN THE MORNING
     Route: 048
  2. LYRICA (PREGABALIN) [Suspect]
     Indication: SCIATICA
     Dosage: 300 MG (150 MG,  2 IN 1 D)
     Route: 048

REACTIONS (3)
  - Muscle spasms [None]
  - Back disorder [None]
  - Drug effect decreased [None]
